FAERS Safety Report 17556641 (Version 1)
Quarter: 2020Q1

REPORT INFORMATION
  Report Type: Spontaneous
  Country: US (occurrence: US)
  Receive Date: 20200318
  Receipt Date: 20200318
  Transmission Date: 20200409
  Serious: Yes (Disabling, Other)
  Sender: FDA-Public Use
  Company Number: None

PATIENT
  Age: 52 Year
  Sex: Female
  Weight: 88.2 kg

DRUGS (2)
  1. LOSARTAN POTASSIUM 50 MG TAB [Suspect]
     Active Substance: LOSARTAN POTASSIUM
     Indication: HYPERTENSION
     Dosage: ?          QUANTITY:1 TABLET(S);?
     Route: 048
     Dates: start: 20200225, end: 20200302
  2. HYDROCHLOROTHIAZIDE. [Suspect]
     Active Substance: HYDROCHLOROTHIAZIDE
     Indication: HYPERTENSION
     Dosage: ?          QUANTITY:1 TABLET(S);?
     Route: 048
     Dates: start: 20200225, end: 20200302

REACTIONS (12)
  - Peripheral swelling [None]
  - Dizziness [None]
  - Vision blurred [None]
  - Asthenia [None]
  - Rash [None]
  - Wheezing [None]
  - Chest discomfort [None]
  - Pharyngeal swelling [None]
  - Hypoaesthesia [None]
  - Musculoskeletal stiffness [None]
  - Skin exfoliation [None]
  - Weight increased [None]

NARRATIVE: CASE EVENT DATE: 20200303
